FAERS Safety Report 18353525 (Version 1)
Quarter: 2020Q4

REPORT INFORMATION
  Report Type: Other
  Country: US (occurrence: US)
  Receive Date: 20201007
  Receipt Date: 20201007
  Transmission Date: 20210114
  Serious: Yes (Other)
  Sender: FDA-Public Use
  Company Number: US-ROCHE-2686455

PATIENT
  Age: 51 Year
  Sex: Female

DRUGS (2)
  1. OCREVUS [Suspect]
     Active Substance: OCRELIZUMAB
     Indication: MULTIPLE SCLEROSIS
     Dosage: 300MG IV DOSE 1 AND AFTER 2 WEEKS, INITIAL DOSE - DAY 1 300MG DAY 15 300MG
     Route: 042
  2. OCREVUS [Suspect]
     Active Substance: OCRELIZUMAB
     Indication: RELAPSING MULTIPLE SCLEROSIS
     Dosage: INFUSE 600MG INTRAVENOUSLY EVERY 6 MONTH(S)
     Route: 042

REACTIONS (5)
  - Dysphagia [Unknown]
  - Impaired gastric emptying [Unknown]
  - Gait disturbance [Unknown]
  - Depression [Unknown]
  - Multiple sclerosis [Unknown]

NARRATIVE: CASE EVENT DATE: 20200810
